FAERS Safety Report 15016053 (Version 1)
Quarter: 2018Q2

REPORT INFORMATION
  Report Type: Spontaneous
  Country: FR (occurrence: FR)
  Receive Date: 20180615
  Receipt Date: 20180615
  Transmission Date: 20180711
  Serious: Yes (Other)
  Sender: FDA-Public Use
  Company Number: FR-NOVOPROD-605203

PATIENT
  Age: 13 Year
  Sex: Female
  Weight: 63.5 kg

DRUGS (9)
  1. METFORMINE                         /00082701/ [Concomitant]
     Active Substance: METFORMIN HYDROCHLORIDE
     Indication: DIABETES MELLITUS
     Dosage: 850 MG, QD
     Route: 048
  2. NORDITROPIN [Suspect]
     Active Substance: SOMATROPIN
     Indication: PRODUCT USED FOR UNKNOWN INDICATION
     Dosage: 2.25 MG, QD
     Route: 058
     Dates: start: 201706, end: 20180403
  3. URBANYL [Concomitant]
     Active Substance: CLOBAZAM
     Dosage: UNK (INCREASED DOSE)
     Route: 048
  4. OROMONE [Concomitant]
     Active Substance: ESTRADIOL
     Indication: OVARIAN FAILURE
     Dosage: 0.5 MG, QD
     Route: 048
  5. NORDITROPIN [Suspect]
     Active Substance: SOMATROPIN
     Dosage: 2.4 MG, QD
     Route: 058
     Dates: start: 20180403, end: 20180409
  6. INOVELON [Concomitant]
     Active Substance: RUFINAMIDE
     Indication: EPILEPSY
     Dosage: 1000 MG
     Route: 048
  7. KEPPRA [Concomitant]
     Active Substance: LEVETIRACETAM
     Indication: EPILEPSY
     Dosage: 2000 MG, QD
     Route: 048
  8. URBANYL [Concomitant]
     Active Substance: CLOBAZAM
     Indication: EPILEPSY
     Dosage: 20 MG, QD
     Route: 048
  9. MICROPAKINE [Concomitant]
     Active Substance: VALPROIC ACID
     Indication: EPILEPSY
     Dosage: 1000 MG, QD
     Route: 048

REACTIONS (1)
  - Epilepsy [Recovered/Resolved]

NARRATIVE: CASE EVENT DATE: 20180403
